FAERS Safety Report 5844097-0 (Version None)
Quarter: 2008Q3

REPORT INFORMATION
  Report Type: 
  Country: None (occurrence: None)
  Receive Date: 20080813
  Receipt Date: 20080804
  Transmission Date: 20090109
  Serious: Yes (Disabling)
  Sender: FDA-Public Use
  Company Number: IE-PFIZER INC-2008051417

PATIENT
  Sex: Female
  Weight: 95.3 kg

DRUGS (1)
  1. LOPID [Suspect]
     Route: 048

REACTIONS (4)
  - ANGER [None]
  - DISTURBANCE IN ATTENTION [None]
  - INSOMNIA [None]
  - MOOD SWINGS [None]
